FAERS Safety Report 19279622 (Version 1)
Quarter: 2021Q2

REPORT INFORMATION
  Report Type: Report from Study
  Country: DE (occurrence: DE)
  Receive Date: 20210520
  Receipt Date: 20210520
  Transmission Date: 20210717
  Serious: Yes (Death, Hospitalization, Other)
  Sender: FDA-Public Use
  Company Number: DE-MYLANLABS-2021M1029550

PATIENT
  Sex: Female
  Weight: 64.7 kg

DRUGS (2)
  1. KISQALI [Suspect]
     Active Substance: RIBOCICLIB
     Indication: BREAST CANCER METASTATIC
     Dosage: 600 MG, SCHEMA 21 DAYS INTAKE INTAKE, 7 DAYS PAUSE (LAST DOSE OF ADMINISTRATION WAS ON 06 DEC 2020)
     Route: 048
     Dates: start: 20201124
  2. EXEMESTANE MYLAN [Suspect]
     Active Substance: EXEMESTANE
     Indication: BREAST CANCER METASTATIC
     Dosage: 25 MG, QD (DAILY DOSE) (LAST ADMINSTRATION WAS ON 06 DEC 2020)
     Route: 048
     Dates: start: 20201124

REACTIONS (6)
  - Nausea [Not Recovered/Not Resolved]
  - Fatigue [Unknown]
  - Ovarian mass [Not Recovered/Not Resolved]
  - Ascites [Not Recovered/Not Resolved]
  - Death [Fatal]
  - Pleural effusion [Not Recovered/Not Resolved]

NARRATIVE: CASE EVENT DATE: 20201126
